FAERS Safety Report 4825414-7 (Version None)
Quarter: 2005Q4

REPORT INFORMATION
  Report Type: 
  Country: None (occurrence: None)
  Receive Date: 20051111
  Receipt Date: 20051031
  Transmission Date: 20060501
  Serious: Yes (Hospitalization, Disabling, Other)
  Sender: FDA-Public Use
  Company Number: US-MERCK-0510USA09999

PATIENT
  Sex: Male

DRUGS (6)
  1. VYTORIN [Suspect]
     Indication: BLOOD CHOLESTEROL INCREASED
     Route: 048
     Dates: start: 20050603, end: 20051027
  2. AMIODARONE [Suspect]
     Indication: ATRIAL FLUTTER
     Route: 065
     Dates: start: 19990101, end: 20051027
  3. LANOXIN [Concomitant]
     Indication: ATRIAL FLUTTER
     Route: 065
     Dates: start: 19990101
  4. PRINIVIL [Concomitant]
     Indication: HYPERTENSION
     Route: 065
     Dates: start: 19990101
  5. COUMADIN [Concomitant]
     Indication: ATRIAL FLUTTER
     Route: 065
     Dates: start: 19990101
  6. LEVOXYL [Concomitant]
     Indication: HYPERTHYROIDISM
     Route: 065
     Dates: start: 20000101

REACTIONS (5)
  - COUGH [None]
  - DRUG INTERACTION [None]
  - DYSPNOEA [None]
  - FIBROSIS [None]
  - LUNG INFILTRATION [None]
